FAERS Safety Report 7242038-5 (Version None)
Quarter: 2011Q1

REPORT INFORMATION
  Report Type: 
  Country: None (occurrence: None)
  Receive Date: 20110114
  Receipt Date: 20110112
  Transmission Date: 20110831
  Serious: Yes (Hospitalization, Other)
  Sender: FDA-Public Use
  Company Number: 20109463

PATIENT
  Age: 57 Year
  Sex: Male

DRUGS (3)
  1. BACLOFEN [Suspect]
     Indication: MUSCLE SPASTICITY
     Dosage: MCG, DAILY, INTRATHECAL
     Route: 037
  2. SEASONAL FLU VACCINE [Concomitant]
  3. NEW INFLUENZA VACCINE [Concomitant]

REACTIONS (3)
  - CONDITION AGGRAVATED [None]
  - MUSCLE SPASTICITY [None]
  - URINARY TRACT INFECTION [None]
